FAERS Safety Report 7400438-4 (Version None)
Quarter: 2011Q2

REPORT INFORMATION
  Report Type: 
  Country: None (occurrence: None)
  Receive Date: 20110407
  Receipt Date: 20110329
  Transmission Date: 20111010
  Serious: Yes (Death, Hospitalization, Other)
  Sender: FDA-Public Use
  Company Number: US-BAXTER-2008BH000756

PATIENT
  Age: 70 Year
  Sex: Male
  Weight: 74 kg

DRUGS (41)
  1. HEPARIN SODIUM INJECTION [Suspect]
     Indication: PERITONEAL DIALYSIS
     Route: 033
     Dates: start: 20071101, end: 20080101
  2. HEPARIN SODIUM INJECTION [Suspect]
     Route: 033
     Dates: start: 20080101, end: 20080201
  3. HEPARIN SODIUM INJECTION [Suspect]
     Route: 033
     Dates: start: 20080201, end: 20080801
  4. HEPARIN SODIUM INJECTION [Suspect]
     Route: 033
     Dates: start: 20080823, end: 20080823
  5. ALTACE [Concomitant]
     Indication: PRODUCT USED FOR UNKNOWN INDICATION
     Route: 065
  6. EPOGEN [Concomitant]
     Indication: PRODUCT USED FOR UNKNOWN INDICATION
     Route: 065
  7. HEPARIN SODIUM INJECTION [Suspect]
     Route: 042
     Dates: start: 20080108, end: 20080118
  8. HEPARIN SODIUM INJECTION [Suspect]
     Route: 042
     Dates: start: 20080622, end: 20080829
  9. FOLTX [Concomitant]
     Indication: PRODUCT USED FOR UNKNOWN INDICATION
     Route: 065
  10. TERAZOSIN [Concomitant]
     Indication: PRODUCT USED FOR UNKNOWN INDICATION
     Route: 065
  11. HEPARIN SODIUM INJECTION [Suspect]
     Route: 042
  12. HEPARIN SODIUM INJECTION [Suspect]
     Route: 033
     Dates: start: 20080824, end: 20080825
  13. ASPIRIN [Concomitant]
     Indication: PRODUCT USED FOR UNKNOWN INDICATION
     Route: 065
  14. HEPARIN SODIUM INJECTION [Suspect]
     Route: 042
     Dates: start: 20080108, end: 20080118
  15. HEPARIN SODIUM INJECTION [Suspect]
     Route: 033
     Dates: start: 20080826, end: 20080828
  16. COZAAR [Concomitant]
     Indication: PRODUCT USED FOR UNKNOWN INDICATION
     Route: 065
  17. HEPARIN SODIUM INJECTION [Suspect]
     Route: 033
     Dates: start: 20080101, end: 20080201
  18. HEPARIN SODIUM INJECTION [Suspect]
     Route: 042
     Dates: start: 20080622, end: 20080829
  19. LASIX [Concomitant]
     Indication: PRODUCT USED FOR UNKNOWN INDICATION
     Route: 065
  20. LIPITOR [Concomitant]
     Indication: PRODUCT USED FOR UNKNOWN INDICATION
     Route: 065
  21. POTASSIUM CHLORIDE [Concomitant]
     Indication: PRODUCT USED FOR UNKNOWN INDICATION
     Route: 033
  22. HEPARIN SODIUM INJECTION [Suspect]
     Indication: PROPHYLAXIS
     Route: 033
     Dates: start: 20071101, end: 20080101
  23. HEPARIN SODIUM INJECTION [Suspect]
     Route: 033
     Dates: start: 20050901
  24. HEPARIN SODIUM INJECTION [Suspect]
     Route: 033
     Dates: start: 20080824, end: 20080825
  25. HEPARIN SODIUM INJECTION [Suspect]
     Route: 033
     Dates: start: 20080826, end: 20080828
  26. CALCITRIOL [Concomitant]
     Indication: PRODUCT USED FOR UNKNOWN INDICATION
     Route: 065
  27. COREG [Concomitant]
     Indication: PRODUCT USED FOR UNKNOWN INDICATION
     Route: 065
  28. LANTUS [Concomitant]
     Indication: PRODUCT USED FOR UNKNOWN INDICATION
     Route: 065
  29. NORVASC [Concomitant]
     Indication: PRODUCT USED FOR UNKNOWN INDICATION
     Route: 065
  30. NOVOLIN 70/30 [Concomitant]
     Indication: PRODUCT USED FOR UNKNOWN INDICATION
     Route: 065
  31. NOVOLIN 70/30 [Concomitant]
     Route: 065
  32. HEPARIN SODIUM INJECTION [Suspect]
     Route: 033
     Dates: start: 20050901
  33. HEPARIN SODIUM INJECTION [Suspect]
     Route: 033
     Dates: start: 20080823, end: 20080823
  34. NIFEREX [Concomitant]
     Indication: PRODUCT USED FOR UNKNOWN INDICATION
     Route: 065
  35. RENAGEL [Concomitant]
     Indication: PRODUCT USED FOR UNKNOWN INDICATION
     Route: 065
  36. HEPARIN SODIUM INJECTION [Suspect]
     Route: 042
  37. HEPARIN SODIUM INJECTION [Suspect]
     Route: 033
     Dates: start: 20080201, end: 20080801
  38. GLIPIZIDE [Concomitant]
     Indication: PRODUCT USED FOR UNKNOWN INDICATION
     Route: 065
  39. HYDRALAZINE [Concomitant]
     Indication: PRODUCT USED FOR UNKNOWN INDICATION
     Route: 065
  40. PLAVIX [Concomitant]
     Indication: PRODUCT USED FOR UNKNOWN INDICATION
     Route: 065
  41. PREVACID [Concomitant]
     Indication: PRODUCT USED FOR UNKNOWN INDICATION
     Route: 065

REACTIONS (22)
  - PERITONITIS BACTERIAL [None]
  - VOMITING [None]
  - RETCHING [None]
  - NERVE INJURY [None]
  - DIARRHOEA [None]
  - CLOSTRIDIAL INFECTION [None]
  - HYPERSENSITIVITY [None]
  - SEPSIS [None]
  - ASTHENIA [None]
  - HYPERHIDROSIS [None]
  - DYSKINESIA [None]
  - HYPOTENSION [None]
  - KLEBSIELLA TEST POSITIVE [None]
  - DIZZINESS [None]
  - FALL [None]
  - ENCEPHALOPATHY [None]
  - PRURITUS [None]
  - DEATH [None]
  - ANAEMIA [None]
  - NAUSEA [None]
  - PERIPHERAL VASCULAR DISORDER [None]
  - ABDOMINAL PAIN [None]
